FAERS Safety Report 11364570 (Version 1)
Quarter: 2015Q3

REPORT INFORMATION
  Report Type: Spontaneous
  Country: SE (occurrence: SE)
  Receive Date: 20150811
  Receipt Date: 20150811
  Transmission Date: 20151125
  Serious: Yes (Other)
  Sender: FDA-Public Use
  Company Number: SE-GLAXOSMITHKLINE INC.-SE2015112999

PATIENT
  Age: 57 Year
  Sex: Female

DRUGS (5)
  1. DUROFERON [Concomitant]
     Active Substance: FERROUS SULFATE\FERROUS SULFATE, DRIED
  2. FLUTIDE NASAL [Suspect]
     Active Substance: FLUTICASONE PROPIONATE
     Indication: ANOSMIA
     Route: 045
     Dates: start: 20150630, end: 20150714
  3. PREDNISOLONE. [Concomitant]
     Active Substance: PREDNISOLONE
  4. KALCIPOS-D [Concomitant]
     Active Substance: CALCIUM CARBONATE\CHOLECALCIFEROL
  5. BRICANYL [Concomitant]
     Active Substance: TERBUTALINE SULFATE

REACTIONS (2)
  - Bronchospasm [Recovered/Resolved]
  - Eyelid oedema [None]

NARRATIVE: CASE EVENT DATE: 201507
